FAERS Safety Report 9300696 (Version 1)
Quarter: 2013Q2

REPORT INFORMATION
  Report Type: Report from Study
  Country: CA (occurrence: CA)
  Receive Date: 20130521
  Receipt Date: 20130521
  Transmission Date: 20140414
  Serious: Yes (Other)
  Sender: FDA-Public Use
  Company Number: CA-JNJFOC-20130509814

PATIENT
  Age: 55 Year
  Sex: Female

DRUGS (8)
  1. REMICADE [Suspect]
     Indication: COLITIS ULCERATIVE
     Route: 042
     Dates: start: 20080116
  2. MAXERAN [Concomitant]
     Indication: PREMEDICATION
     Route: 065
  3. BENADRYL [Concomitant]
     Indication: PREMEDICATION
     Route: 065
  4. SOLUCORTEF [Concomitant]
     Indication: PREMEDICATION
     Route: 065
  5. IMODIUM [Concomitant]
     Indication: PREMEDICATION
     Route: 065
  6. ADALAT [Concomitant]
     Indication: PREMEDICATION
     Route: 065
  7. DIOVAN [Concomitant]
     Indication: PREMEDICATION
     Route: 065
  8. MEZAVANT [Concomitant]
     Indication: PREMEDICATION
     Route: 065

REACTIONS (1)
  - Thrombosis [Recovered/Resolved]
